FAERS Safety Report 21098453 (Version 1)
Quarter: 2022Q3

REPORT INFORMATION
  Report Type: Spontaneous
  Country: CN (occurrence: CN)
  Receive Date: 20220719
  Receipt Date: 20220719
  Transmission Date: 20221027
  Serious: Yes (Life-Threatening, Hospitalization)
  Sender: FDA-Public Use
  Company Number: CN-MLMSERVICE-20220706-3659132-1

PATIENT
  Age: 73 Year
  Sex: Male

DRUGS (5)
  1. DEXAMETHASONE [Suspect]
     Active Substance: DEXAMETHASONE
     Indication: Allergy prophylaxis
     Dosage: ON DAYS 0-2
     Route: 065
     Dates: start: 2019, end: 20200221
  2. CISPLATIN [Concomitant]
     Active Substance: CISPLATIN
     Indication: Metastases to spine
     Dosage: 40 MG ON DAY 1 TO 3 REPEATED EVERY 21 DAYS, COMPLETED SIX CYCLES OF TREATMENT (DP-REGIMEN)
     Dates: start: 2019
  3. CISPLATIN [Concomitant]
     Active Substance: CISPLATIN
     Indication: Prostate cancer
  4. DOCETAXEL [Concomitant]
     Active Substance: DOCETAXEL
     Indication: Metastases to spine
     Dosage: 120 MG ON DAY 1 REPEATED EVERY 21 DAYS, COMPLETED SIX CYCLES OF TREATMENT
     Dates: start: 2019
  5. DOCETAXEL [Concomitant]
     Active Substance: DOCETAXEL
     Indication: Prostate cancer
     Dosage: FOLLOWED BY DOCETAXEL CHEMOTHERAPY, ONLY, FOR THREE CYCLES
     Dates: end: 20200221

REACTIONS (1)
  - Pneumocystis jirovecii pneumonia [Recovered/Resolved]

NARRATIVE: CASE EVENT DATE: 20200228
